FAERS Safety Report 24348982 (Version 2)
Quarter: 2024Q3

REPORT INFORMATION
  Report Type: Spontaneous
  Country: FR (occurrence: FR)
  Receive Date: 20240923
  Receipt Date: 20240926
  Transmission Date: 20241017
  Serious: Yes (Hospitalization, Other)
  Sender: AUROBINDO
  Company Number: FR-AstraZeneca-2024A188365

PATIENT
  Age: 57 Year
  Sex: Female
  Weight: 58 kg

DRUGS (14)
  1. CARBOPLATIN [Suspect]
     Active Substance: CARBOPLATIN
     Indication: Non-small cell lung cancer
     Dosage: 545 MILLIGRAM
     Route: 042
     Dates: start: 20240723
  2. CARBOPLATIN [Suspect]
     Active Substance: CARBOPLATIN
     Dosage: 560 MILLIGRAM
     Route: 042
     Dates: start: 20240903
  3. PEMETREXED [Suspect]
     Active Substance: PEMETREXED
     Indication: Non-small cell lung cancer
     Dosage: 787.5 MILLIGRAM/SQ. METER
     Route: 042
     Dates: start: 20240723
  4. PEMETREXED [Suspect]
     Active Substance: PEMETREXED
     Dosage: 675 MILLIGRAM/SQ. METER
     Route: 042
     Dates: start: 20240903
  5. VOGALENE [Concomitant]
     Active Substance: METOPIMAZINE
     Indication: Nausea
     Dosage: 7.5 MILLIGRAM
     Route: 048
     Dates: start: 20240726
  6. DOLIPRANE [Concomitant]
     Active Substance: ACETAMINOPHEN
     Indication: Pain in extremity
     Dosage: 100 MILLIGRAM
     Route: 048
     Dates: start: 20240725
  7. EZETIMIBE\SIMVASTATIN [Concomitant]
     Active Substance: EZETIMIBE\SIMVASTATIN
     Indication: Hypercholesterolaemia
     Dosage: 20 MILLIGRAM, 1 TOTAL
     Route: 048
     Dates: start: 202405
  8. FULPHILA [Concomitant]
     Active Substance: PEGFILGRASTIM-JMDB
     Indication: Neutropenia
     Dosage: 6 MILLIGRAM
     Route: 065
     Dates: start: 20240725
  9. TRELEGY ELLIPTA [Concomitant]
     Active Substance: FLUTICASONE FUROATE\UMECLIDINIUM BROMIDE\VILANTEROL TRIFENATATE
     Indication: Chronic obstructive pulmonary disease
     Dosage: 1 DOSAGE FORM (1 PUFF)
     Dates: start: 202406
  10. ESOMEPRAZOLE [Concomitant]
     Active Substance: ESOMEPRAZOLE
     Indication: Abdominal pain upper
     Dosage: 40 MILLIGRAM
     Route: 065
     Dates: start: 20240725
  11. CYANOCOBALAMIN [Concomitant]
     Active Substance: CYANOCOBALAMIN
     Indication: Premedication
     Dosage: 1000 MICROGRAM
     Route: 048
     Dates: start: 20240718
  12. SOLU-MEDROL [Concomitant]
     Active Substance: METHYLPREDNISOLONE SODIUM SUCCINATE
     Indication: Chemotherapy
     Dosage: 30 MILLIGRAM
     Route: 048
     Dates: start: 20240723
  13. EBASTINE [Concomitant]
     Active Substance: EBASTINE
     Indication: Pruritus
     Dosage: 10 MILLIGRAM
     Route: 048
     Dates: start: 20240726
  14. Solupred [Concomitant]
     Indication: Chemotherapy
     Dosage: 40 MILLIGRAM
     Route: 048
     Dates: start: 20240722

REACTIONS (1)
  - Erysipelas [Recovered/Resolved]

NARRATIVE: CASE EVENT DATE: 20240811
